FAERS Safety Report 16697119 (Version 1)
Quarter: 2019Q3

REPORT INFORMATION
  Report Type: Spontaneous
  Country: US (occurrence: US)
  Receive Date: 20190813
  Receipt Date: 20190813
  Transmission Date: 20191004
  Serious: No
  Sender: FDA-Public Use
  Company Number: US-JNJFOC-20190812538

PATIENT
  Age: 62 Year
  Sex: Female
  Weight: 90.8 kg

DRUGS (11)
  1. DARZALEX [Suspect]
     Active Substance: DARATUMUMAB
     Indication: PRODUCT USED FOR UNKNOWN INDICATION
     Dosage: 8 MG/KG SPLIT DOSE
     Route: 042
     Dates: start: 20190808
  2. SINGULAIR [Concomitant]
     Active Substance: MONTELUKAST SODIUM
  3. POMALYST [Concomitant]
     Active Substance: POMALIDOMIDE
  4. ANASTRAZOLE DENK [Concomitant]
     Active Substance: ANASTROZOLE
  5. DARZALEX [Suspect]
     Active Substance: DARATUMUMAB
     Route: 042
     Dates: start: 20190808
  6. LISINOPRIL/HCTZ [Concomitant]
     Active Substance: HYDROCHLOROTHIAZIDE\LISINOPRIL
  7. NIFEDIPINE. [Concomitant]
     Active Substance: NIFEDIPINE
  8. ASPIRIN                            /00002701/ [Concomitant]
     Active Substance: ASPIRIN
  9. ACYCLOVIR                          /00587301/ [Concomitant]
     Active Substance: ACYCLOVIR
  10. OMEPRAZOLE. [Concomitant]
     Active Substance: OMEPRAZOLE
  11. DARZALEX [Suspect]
     Active Substance: DARATUMUMAB
     Dosage: 8 MG/KG
     Route: 042
     Dates: start: 20190808

REACTIONS (3)
  - Infusion site extravasation [Not Recovered/Not Resolved]
  - Peripheral swelling [Not Recovered/Not Resolved]
  - Infusion related reaction [Not Recovered/Not Resolved]

NARRATIVE: CASE EVENT DATE: 20190808
